FAERS Safety Report 4659389-0 (Version None)
Quarter: 2005Q2

REPORT INFORMATION
  Report Type: 
  Country: None (occurrence: None)
  Receive Date: 20050510
  Receipt Date: 20050404
  Transmission Date: 20051028
  Serious: Yes (Life-Threatening, Hospitalization)
  Sender: FDA-Public Use
  Company Number: 200510890GDS

PATIENT
  Age: 23 Year
  Sex: Female

DRUGS (7)
  1. NIFEDIPINE [Suspect]
     Indication: PREMATURE LABOUR
     Dosage: 40 MG, TOTAL DAILY, ORAL
     Route: 048
  2. NIFEDIPINE [Suspect]
     Indication: TOCOLYSIS
     Dosage: 40 MG, TOTAL DAILY, ORAL
     Route: 048
  3. NIFEDIPINE [Suspect]
     Indication: PREMATURE LABOUR
     Dosage: 40 MG, TOTAL DAILY, ORAL
     Route: 048
  4. NIFEDIPINE [Suspect]
     Indication: TOCOLYSIS
     Dosage: 40 MG, TOTAL DAILY, ORAL
     Route: 048
  5. ATOSIBAN [Concomitant]
  6. STEROIDS [Concomitant]
  7. INDOMETHACIN [Concomitant]

REACTIONS (5)
  - DRUG EXPOSURE DURING PREGNANCY [None]
  - HYPOTENSION [None]
  - INDUCED LABOUR [None]
  - INTRA-UTERINE DEATH [None]
  - UMBILICAL CORD ABNORMALITY [None]
